FAERS Safety Report 17112574 (Version 3)
Quarter: 2021Q1

REPORT INFORMATION
  Report Type: Report from Study
  Country: DE (occurrence: DE)
  Receive Date: 20191204
  Receipt Date: 20210304
  Transmission Date: 20210419
  Serious: Yes (Other)
  Sender: FDA-Public Use
  Company Number: PHHY2018DE080236

PATIENT
  Age: 33 Year
  Sex: Female
  Weight: 58 kg

DRUGS (7)
  1. FOLIC ACID. [Concomitant]
     Active Substance: FOLIC ACID
     Dosage: 400 MG, QD
     Route: 048
     Dates: start: 20180519
  2. GILENYA [Suspect]
     Active Substance: FINGOLIMOD HYDROCHLORIDE
     Indication: RELAPSING-REMITTING MULTIPLE SCLEROSIS
     Dosage: 0.5 MG, QD
     Route: 048
     Dates: start: 20170620, end: 20180318
  3. ESCITALOPRAM OXALATE. [Concomitant]
     Active Substance: ESCITALOPRAM OXALATE
     Indication: DEPRESSION
     Dosage: 10 MG, QD
     Route: 048
     Dates: start: 20170301
  4. MAGNESIUM [Concomitant]
     Active Substance: MAGNESIUM
     Indication: RESTLESS LEGS SYNDROME
     Dosage: 500 MG, QD
     Route: 048
     Dates: start: 20180701, end: 20180712
  5. MAGNESIUM [Concomitant]
     Active Substance: MAGNESIUM
     Dosage: 450 MG, BID
     Route: 048
     Dates: start: 20180713
  6. FOLIC ACID. [Concomitant]
     Active Substance: FOLIC ACID
     Indication: PROPHYLAXIS
     Dosage: 800 MG, QD
     Route: 048
     Dates: start: 20180318, end: 20180514
  7. BUPROPION HYDROCHLORIDE. [Concomitant]
     Active Substance: BUPROPION HYDROCHLORIDE
     Indication: FATIGUE
     Dosage: 150 MG, QD
     Route: 048
     Dates: start: 20170301, end: 20180318

REACTIONS (6)
  - Normal newborn [Unknown]
  - Iron deficiency [Recovering/Resolving]
  - Delivery [Unknown]
  - Uterine haemorrhage [Recovered/Resolved]
  - Maternal exposure during pregnancy [Unknown]
  - Varicose vein [Recovered/Resolved]

NARRATIVE: CASE EVENT DATE: 20180820
